FAERS Safety Report 9758395 (Version 1)
Quarter: 2013Q4

REPORT INFORMATION
  Report Type: Spontaneous
  Country: US (occurrence: None)
  Receive Date: 20131213
  Receipt Date: 20131213
  Transmission Date: 20140711
  Serious: Yes (Hospitalization)
  Sender: FDA-Public Use
  Company Number: None

PATIENT
  Age: 84 Year
  Sex: Female

DRUGS (1)
  1. PAZOPANIB [Suspect]
     Indication: ANGIOSARCOMA
     Route: 048

REACTIONS (3)
  - Vomiting [None]
  - Platelet count decreased [None]
  - Urinary tract infection [None]
